APPROVED DRUG PRODUCT: BETAXOLOL HYDROCHLORIDE
Active Ingredient: BETAXOLOL HYDROCHLORIDE
Strength: EQ 0.5% BASE
Dosage Form/Route: SOLUTION/DROPS;OPHTHALMIC
Application: A075386 | Product #001
Applicant: PHARMOBEDIENT CONSULTING LLC
Approved: Jun 30, 2000 | RLD: No | RS: No | Type: DISCN